FAERS Safety Report 13106310 (Version 2)
Quarter: 2017Q1

REPORT INFORMATION
  Report Type: Report from Study
  Country: US (occurrence: US)
  Receive Date: 20170111
  Receipt Date: 20170310
  Transmission Date: 20170428
  Serious: Yes (Death)
  Sender: FDA-Public Use
  Company Number: US-EISAI MEDICAL RESEARCH-EC-2017-023954

PATIENT
  Age: 60 Year
  Sex: Male
  Weight: 100.1 kg

DRUGS (7)
  1. KEPPRA [Concomitant]
     Active Substance: LEVETIRACETAM
  2. RITALIN [Concomitant]
     Active Substance: METHYLPHENIDATE HYDROCHLORIDE
  3. MIDAZOLAM [Concomitant]
     Active Substance: MIDAZOLAM HYDROCHLORIDE
     Indication: LIPOSARCOMA
     Dosage: C1D-3, C1D1, AND C1D14
     Route: 048
     Dates: start: 20161220, end: 20170104
  4. LISINOPRIL. [Concomitant]
     Active Substance: LISINOPRIL
  5. COMPAZINE [Concomitant]
     Active Substance: PROCHLORPERAZINE MALEATE
  6. LENVATINIB [Suspect]
     Active Substance: LENVATINIB
     Indication: LIPOSARCOMA
     Route: 048
     Dates: start: 20161222, end: 20170109
  7. CYMBALTA [Concomitant]
     Active Substance: DULOXETINE HYDROCHLORIDE

REACTIONS (1)
  - Sudden death [Fatal]

NARRATIVE: CASE EVENT DATE: 20170109
